FAERS Safety Report 25555880 (Version 2)
Quarter: 2025Q4

REPORT INFORMATION
  Report Type: Spontaneous
  Country: US (occurrence: US)
  Receive Date: 20250715
  Receipt Date: 20251117
  Transmission Date: 20260117
  Serious: No
  Sender: SANOFI AVENTIS
  Company Number: US-SA-2025SA197589

PATIENT
  Age: 5 Year
  Sex: Female

DRUGS (2)
  1. DUPIXENT [Suspect]
     Active Substance: DUPILUMAB
     Indication: Eczema
     Dosage: 300 MG, Q4W
     Route: 058
     Dates: start: 20240819
  2. DUPIXENT [Suspect]
     Active Substance: DUPILUMAB
     Dosage: UNK
     Dates: start: 2025

REACTIONS (6)
  - Skin fissures [Unknown]
  - Therapeutic response shortened [Unknown]
  - Dry skin [Unknown]
  - Rebound effect [Recovering/Resolving]
  - Product dose omission issue [Unknown]
  - Eye pruritus [Unknown]

NARRATIVE: CASE EVENT DATE: 20250101
